FAERS Safety Report 13382457 (Version 1)
Quarter: 2017Q1

REPORT INFORMATION
  Report Type: Report from Study
  Country: BR (occurrence: BR)
  Receive Date: 20170329
  Receipt Date: 20170329
  Transmission Date: 20170429
  Serious: Yes (Hospitalization)
  Sender: FDA-Public Use
  Company Number: PHHY2017BR046462

PATIENT
  Sex: Female
  Weight: 80 kg

DRUGS (1)
  1. EXELON PATCH [Suspect]
     Active Substance: RIVASTIGMINE
     Indication: DEMENTIA ALZHEIMER^S TYPE
     Dosage: 13.3 MG, QD PATCH 15CM2
     Route: 062
     Dates: start: 201510

REACTIONS (4)
  - Dysstasia [Unknown]
  - Gait disturbance [Unknown]
  - Eschar [Unknown]
  - Dementia [Unknown]
